FAERS Safety Report 24911022 (Version 1)
Quarter: 2025Q1

REPORT INFORMATION
  Report Type: Spontaneous
  Country: FR (occurrence: FR)
  Receive Date: 20250131
  Receipt Date: 20250131
  Transmission Date: 20250408
  Serious: Yes (Other)
  Sender: MYLAN
  Company Number: FR-ROCHE-10000157432

PATIENT
  Age: 65 Year
  Sex: Male

DRUGS (3)
  1. MYCOPHENOLATE MOFETIL [Suspect]
     Active Substance: MYCOPHENOLATE MOFETIL
     Indication: Drug-induced liver injury
     Route: 065
  2. ATEZOLIZUMAB [Suspect]
     Active Substance: ATEZOLIZUMAB
     Indication: Head and neck cancer
     Route: 065
  3. URSODIOL [Concomitant]
     Active Substance: URSODIOL
     Route: 065

REACTIONS (3)
  - Drug-induced liver injury [Unknown]
  - Acute hepatic failure [Unknown]
  - Off label use [Unknown]
